FAERS Safety Report 12855024 (Version 4)
Quarter: 2016Q4

REPORT INFORMATION
  Report Type: Spontaneous
  Country: JP (occurrence: JP)
  Receive Date: 20161017
  Receipt Date: 20161214
  Transmission Date: 20170207
  Serious: Yes (Hospitalization, Other)
  Sender: FDA-Public Use
  Company Number: JP-SA-2016SA061169

PATIENT
  Age: 76 Year
  Sex: Male
  Weight: 59.4 kg

DRUGS (23)
  1. G-CSF [Concomitant]
     Active Substance: GRANULOCYTE COLONY-STIMULATING FACTOR NOS
     Route: 065
     Dates: start: 20160318, end: 20160318
  2. PITAVASTATIN [Concomitant]
     Active Substance: PITAVASTATIN
     Route: 048
  3. GOSERELIN [Concomitant]
     Active Substance: GOSERELIN
     Route: 065
     Dates: start: 20130108
  4. OXYCONTIN [Concomitant]
     Active Substance: OXYCODONE HYDROCHLORIDE
     Route: 048
  5. CARBOCISTEINE [Concomitant]
     Active Substance: CARBOCYSTEINE
     Route: 048
  6. TAXOTERE [Suspect]
     Active Substance: DOCETAXEL
     Dosage: DOSE: 90 - 120 MG/CYCLE
     Route: 042
     Dates: start: 20140425, end: 20140425
  7. ONGLYZA [Concomitant]
     Active Substance: SAXAGLIPTIN HYDROCHLORIDE
     Route: 048
  8. PREDNISOLONE. [Concomitant]
     Active Substance: PREDNISOLONE
     Route: 048
     Dates: start: 20160317
  9. TAXOTERE [Suspect]
     Active Substance: DOCETAXEL
     Dosage: DOSE: 90 - 120 MG/CYCLE
     Route: 042
     Dates: start: 20150929, end: 20150929
  10. LYRICA [Concomitant]
     Active Substance: PREGABALIN
     Route: 048
  11. OXYCONTIN [Concomitant]
     Active Substance: OXYCODONE HYDROCHLORIDE
     Route: 048
  12. JEVTANA [Suspect]
     Active Substance: CABAZITAXEL
     Indication: PROSTATE CANCER
     Dosage: DOSE: 25 - 30 MG,
     Route: 042
  13. G-CSF [Concomitant]
     Active Substance: GRANULOCYTE COLONY-STIMULATING FACTOR NOS
     Route: 065
  14. ALFACALCIDOL [Concomitant]
     Active Substance: ALFACALCIDOL
     Route: 048
  15. JEVTANA [Suspect]
     Active Substance: CABAZITAXEL
     Indication: PROSTATE CANCER
     Dosage: DOSE: 20-30 MG/M2
     Route: 042
     Dates: start: 20160317, end: 20160317
  16. VOGLIBOSE [Concomitant]
     Active Substance: VOGLIBOSE
     Route: 048
  17. G-LASTA SUBCUTANEOUS INJECTION [Concomitant]
     Active Substance: PEGFILGRASTIM
     Route: 058
     Dates: start: 20160427, end: 20160427
  18. BENIDIPINE [Concomitant]
     Active Substance: BENIDIPINE
     Route: 048
  19. NEXIUM [Concomitant]
     Active Substance: ESOMEPRAZOLE MAGNESIUM
     Route: 048
  20. DECADRON [Concomitant]
     Active Substance: DEXAMETHASONE
     Route: 048
  21. MAGLAX [Concomitant]
     Active Substance: MAGNESIUM OXIDE
     Route: 048
  22. TAMSULOSIN [Concomitant]
     Active Substance: TAMSULOSIN
     Route: 048
  23. BICALUTAMIDE. [Concomitant]
     Active Substance: BICALUTAMIDE
     Route: 048
     Dates: end: 20160316

REACTIONS (10)
  - Chills [Unknown]
  - Neutrophil count decreased [Recovered/Resolved]
  - Folliculitis [Recovering/Resolving]
  - Altered state of consciousness [Unknown]
  - Pyrexia [Recovered/Resolved]
  - Neutrophil count decreased [Recovered/Resolved]
  - Febrile neutropenia [Recovered/Resolved]
  - Malaise [Unknown]
  - Neutrophil count decreased [Recovered/Resolved]
  - Pyrexia [Recovered/Resolved]

NARRATIVE: CASE EVENT DATE: 20140425
